FAERS Safety Report 12360026 (Version 3)
Quarter: 2016Q3

REPORT INFORMATION
  Report Type: Spontaneous
  Country: US (occurrence: US)
  Receive Date: 20160512
  Receipt Date: 20160805
  Transmission Date: 20161109
  Serious: Yes (Hospitalization)
  Sender: FDA-Public Use
  Company Number: US-JNJFOC-20160506988

PATIENT
  Age: 49 Year
  Sex: Male

DRUGS (1)
  1. XARELTO [Suspect]
     Active Substance: RIVAROXABAN
     Indication: DEEP VEIN THROMBOSIS
     Route: 048
     Dates: start: 20140513, end: 20141027

REACTIONS (4)
  - Cerebrovascular accident [Recovering/Resolving]
  - Haemorrhage intracranial [Unknown]
  - Haemoptysis [Recovering/Resolving]
  - Intraventricular haemorrhage [Unknown]

NARRATIVE: CASE EVENT DATE: 20140714
